FAERS Safety Report 8193517-8 (Version None)
Quarter: 2012Q1

REPORT INFORMATION
  Report Type: 
  Country: None (occurrence: None)
  Receive Date: 20120308
  Receipt Date: 20120228
  Transmission Date: 20120608
  Serious: Yes (Hospitalization)
  Sender: FDA-Public Use
  Company Number: FR-SANOFI-AVENTIS-2012SA013411

PATIENT
  Age: 72 Year
  Sex: Female

DRUGS (6)
  1. ASPIRIN [Suspect]
     Indication: PULMONARY EMBOLISM
     Route: 048
     Dates: start: 20111220, end: 20111224
  2. LASIX [Suspect]
     Route: 048
     Dates: start: 20110101, end: 20111201
  3. EUPRESSYL [Suspect]
     Route: 048
     Dates: start: 20110101, end: 20111224
  4. ACUPAN [Suspect]
     Route: 042
     Dates: start: 20111225, end: 20111225
  5. NEBIVOLOL [Suspect]
     Route: 048
     Dates: start: 20110101, end: 20111224
  6. CALCIPARINE [Suspect]
     Indication: PULMONARY EMBOLISM
     Route: 058
     Dates: start: 20111219, end: 20111225

REACTIONS (2)
  - MUSCLE HAEMORRHAGE [None]
  - ANAEMIA [None]
